FAERS Safety Report 16790543 (Version 1)
Quarter: 2019Q3

REPORT INFORMATION
  Report Type: Spontaneous
  Country: TR (occurrence: TR)
  Receive Date: 20190910
  Receipt Date: 20190910
  Transmission Date: 20191005
  Serious: Yes (Other)
  Sender: FDA-Public Use
  Company Number: PHHY2019TR207316

PATIENT

DRUGS (1)
  1. VOTRIENT [Suspect]
     Active Substance: PAZOPANIB HYDROCHLORIDE
     Indication: RENAL CELL CARCINOMA
     Dosage: 2 DF, QD (2 TABLET, TOTALLY 800MG)
     Route: 048

REACTIONS (18)
  - Abdominal pain upper [Unknown]
  - Epistaxis [Unknown]
  - Diarrhoea [Unknown]
  - Flatulence [Unknown]
  - Fatigue [Unknown]
  - Hypertension [Unknown]
  - Asthenia [Unknown]
  - Taste disorder [Unknown]
  - Vomiting [Unknown]
  - Palpitations [Unknown]
  - Gastrointestinal disorder [Unknown]
  - Achromotrichia acquired [Unknown]
  - Pruritus [Unknown]
  - Jaundice [Unknown]
  - Renal papillary necrosis [Unknown]
  - Decreased appetite [Unknown]
  - Nausea [Unknown]
  - Hyperhidrosis [Unknown]
